FAERS Safety Report 18176173 (Version 2)
Quarter: 2020Q4

REPORT INFORMATION
  Report Type: Report from Study
  Country: BR (occurrence: BR)
  Receive Date: 20200820
  Receipt Date: 20201205
  Transmission Date: 20210113
  Serious: Yes (Other)
  Sender: FDA-Public Use
  Company Number: BR-UCBSA-2020031773

PATIENT
  Age: 56 Year
  Sex: Female
  Weight: 98 kg

DRUGS (4)
  1. DRAMIN [Concomitant]
     Active Substance: DIMENHYDRINATE
     Indication: NAUSEA
     Dosage: UNK
  2. VITAMIN B12 [Concomitant]
     Active Substance: CYANOCOBALAMIN
     Indication: ANAEMIA
     Dosage: UNK
  3. CERTOLIZUMAB PEGOL RA [Suspect]
     Active Substance: CERTOLIZUMAB PEGOL
     Indication: RHEUMATOID ARTHRITIS
     Dosage: 400 MILLIGRAM, EV 30 DAYS
     Route: 058
     Dates: start: 202004
  4. VITAFER [ASCORBIC ACID;CYANOCOBALAMIN;FERROUS FUMARATE;FOLIC ACID;INTR [Concomitant]
     Indication: ANAEMIA
     Dosage: UNK

REACTIONS (14)
  - Malaise [Recovered/Resolved]
  - Weight decreased [Recovered/Resolved]
  - Arthralgia [Recovering/Resolving]
  - Blood glucose abnormal [Not Recovered/Not Resolved]
  - Burning sensation [Recovering/Resolving]
  - Headache [Recovered/Resolved]
  - Ageusia [Unknown]
  - Dyspepsia [Not Recovered/Not Resolved]
  - Decreased appetite [Not Recovered/Not Resolved]
  - Tinnitus [Recovered/Resolved]
  - Drug ineffective [Unknown]
  - Blood pressure abnormal [Recovered/Resolved]
  - Abdominal pain upper [Recovered/Resolved]
  - Liver function test abnormal [Not Recovered/Not Resolved]

NARRATIVE: CASE EVENT DATE: 2020
